FAERS Safety Report 11999511 (Version 2)
Quarter: 2016Q1

REPORT INFORMATION
  Report Type: Report from Study
  Country: US (occurrence: US)
  Receive Date: 20160204
  Receipt Date: 20160209
  Transmission Date: 20160526
  Serious: Yes (Hospitalization, Other)
  Sender: FDA-Public Use
  Company Number: US-AMGEN-USASL2016012334

PATIENT
  Age: 81 Year
  Sex: Female

DRUGS (2)
  1. ENBREL [Suspect]
     Active Substance: ETANERCEPT
     Indication: PRODUCT USED FOR UNKNOWN INDICATION
     Dosage: UNK
     Route: 065
     Dates: end: 201509
  2. METHOTREXATE [Concomitant]
     Active Substance: METHOTREXATE
     Dosage: UNK
     Dates: end: 201509

REACTIONS (12)
  - Feeling abnormal [Unknown]
  - Pneumonia [Unknown]
  - Sepsis [Unknown]
  - Musculoskeletal chest pain [Unknown]
  - Sciatica [Unknown]
  - Alopecia [Unknown]
  - Condition aggravated [Unknown]
  - Lymphadenopathy [Unknown]
  - Thyroid cancer [Unknown]
  - Splenomegaly [Unknown]
  - Monoclonal gammopathy [Unknown]
  - Blood disorder [Unknown]
